FAERS Safety Report 16327429 (Version 3)
Quarter: 2019Q2

REPORT INFORMATION
  Report Type: Spontaneous
  Country: FR (occurrence: FR)
  Receive Date: 20190517
  Receipt Date: 20190619
  Transmission Date: 20190711
  Serious: Yes (Other)
  Sender: FDA-Public Use
  Company Number: FR-ELI_LILLY_AND_COMPANY-FR201905005440

PATIENT
  Sex: Male

DRUGS (2)
  1. ZYPADHERA [Suspect]
     Active Substance: OLANZAPINE PAMOATE
     Dosage: 405 MG, MONTHLY (1/M)
     Route: 030
     Dates: start: 201803
  2. ZYPADHERA [Suspect]
     Active Substance: OLANZAPINE PAMOATE
     Indication: PRODUCT USED FOR UNKNOWN INDICATION
     Dosage: 300 MG, EVERY 2 WEEKS
     Route: 030
     Dates: start: 201701

REACTIONS (6)
  - Muscular weakness [Unknown]
  - Sedation [Unknown]
  - Post-injection delirium sedation syndrome [Unknown]
  - Somnolence [Unknown]
  - Syncope [Unknown]
  - Depressed level of consciousness [Unknown]

NARRATIVE: CASE EVENT DATE: 20190409
